FAERS Safety Report 10558748 (Version 1)
Quarter: 2014Q4

REPORT INFORMATION
  Report Type: Spontaneous
  Country: JP (occurrence: JP)
  Receive Date: 20141031
  Receipt Date: 20141031
  Transmission Date: 20150529
  Serious: Yes (Hospitalization)
  Sender: FDA-Public Use
  Company Number: JP-TEVA-518408USA

PATIENT

DRUGS (2)
  1. ZINC [Suspect]
     Active Substance: ZINC\ZINC CHLORIDE
     Indication: HYPERAMMONAEMIA
     Dosage: 150 MILLIGRAM DAILY;
     Route: 048
  2. ZINC [Suspect]
     Active Substance: ZINC\ZINC CHLORIDE
     Indication: HEPATIC CIRRHOSIS

REACTIONS (2)
  - Product use issue [Unknown]
  - Hepatic encephalopathy [Recovered/Resolved]
